FAERS Safety Report 6912249-4 (Version None)
Quarter: 2010Q3

REPORT INFORMATION
  Report Type: 
  Country: None (occurrence: None)
  Receive Date: 20100806
  Receipt Date: 20080306
  Transmission Date: 20110219
  Serious: Yes (Other)
  Sender: FDA-Public Use
  Company Number: US-PFIZER INC-2007104965

PATIENT
  Sex: Female
  Weight: 76.2 kg

DRUGS (4)
  1. DILANTIN-125 [Suspect]
     Indication: CONVULSION
     Dates: start: 19430101
  2. DILANTIN [Suspect]
     Indication: CONVULSION
  3. DILANTIN [Suspect]
  4. PHENOBARBITAL [Concomitant]

REACTIONS (1)
  - CONVULSION [None]
